FAERS Safety Report 8464678 (Version 4)
Quarter: 2014Q4

REPORT INFORMATION
  Report Type: Spontaneous
  Country: US (occurrence: None)
  Receive Date: 20120313
  Receipt Date: 20141027
  Transmission Date: 20150529
  Serious: Yes (Life-Threatening, Hospitalization, Other)
  Sender: FDA-Public Use
  Company Number: ADR-2012-00411

PATIENT
  Age: 18 Year
  Sex: Male

DRUGS (2)
  1. BACLOFEN. [Suspect]
     Active Substance: BACLOFEN
     Indication: MUSCLE SPASTICITY
     Dosage: SEE B5
  2. BACLOFEN. [Suspect]
     Active Substance: BACLOFEN
     Indication: CEREBRAL PALSY
     Dosage: SEE B5

REACTIONS (17)
  - Vomiting [None]
  - Device damage [None]
  - Infusion site fibrosis [None]
  - Accidental overdose [None]
  - Device dislocation [None]
  - Complication of device removal [None]
  - Abnormal behaviour [None]
  - Incorrect route of drug administration [None]
  - Medical device complication [None]
  - Device connection issue [None]
  - Implant site extravasation [None]
  - Implant site induration [None]
  - Infusion site cyst [None]
  - Hypotension [None]
  - Pneumonia aspiration [None]
  - Implant site fibrosis [None]
  - Muscle tightness [None]

NARRATIVE: CASE EVENT DATE: 20120106
